FAERS Safety Report 4590119-7 (Version None)
Quarter: 2005Q1

REPORT INFORMATION
  Report Type: 
  Country: None (occurrence: None)
  Receive Date: 20050217
  Receipt Date: 20050217
  Transmission Date: 20050727
  Serious: Yes (Other)
  Sender: FDA-Public Use
  Company Number: None

PATIENT
  Age: 67 Year
  Sex: Male
  Weight: 111.6 kg

DRUGS (6)
  1. NIACIN [Suspect]
  2. FINASTERIDE [Concomitant]
  3. TAMSULOSIN HCL [Concomitant]
  4. FOSINOPRIL [Concomitant]
  5. ISOSORBIDE DINITRATE [Concomitant]
  6. NITROGLYCERIN [Concomitant]

REACTIONS (2)
  - NIGHT SWEATS [None]
  - URTICARIA [None]
